FAERS Safety Report 10502942 (Version 1)
Quarter: 2014Q4

REPORT INFORMATION
  Report Type: Spontaneous
  Country: ES (occurrence: ES)
  Receive Date: 20141007
  Receipt Date: 20141007
  Transmission Date: 20150528
  Serious: Yes (Hospitalization)
  Sender: FDA-Public Use
  Company Number: ALCN2014ES005507

PATIENT
  Age: 7 Year

DRUGS (2)
  1. TIMOLOL [Suspect]
     Active Substance: TIMOLOL
     Indication: DEVELOPMENTAL GLAUCOMA
     Dosage: 1 DF, QD
     Route: 047
  2. SALBUTAMOL [Concomitant]
     Active Substance: ALBUTEROL
     Indication: ASTHMA
     Dosage: UNK
     Route: 055

REACTIONS (3)
  - Asthma [Unknown]
  - Adverse drug reaction [Unknown]
  - Loss of consciousness [Unknown]
